FAERS Safety Report 8785343 (Version 1)
Quarter: 2012Q4

REPORT INFORMATION
  Report Type: Report from Study
  Country: JP (occurrence: JP)
  Receive Date: 20120914
  Receipt Date: 20120914
  Transmission Date: 20130627
  Serious: Yes (Other)
  Sender: FDA-Public Use
  Company Number: JP-VERTEX PHARMACEUTICAL INC.-AE-2012-007783

PATIENT

DRUGS (13)
  1. VX-950 [Suspect]
     Indication: HEPATITIS C
     Dosage: 2250 mg, qd
     Route: 048
     Dates: start: 20120411
  2. PEGINTERFERON ALFA-2B [Concomitant]
     Dosage: 1.5 UNK, UNK
     Route: 058
     Dates: start: 20120411, end: 20120411
  3. PEGINTERFERON ALFA-2B [Concomitant]
     Dosage: 50 UNK, UNK
     Route: 058
     Dates: start: 20120418, end: 20120418
  4. PEGINTERFERON ALFA-2B [Concomitant]
     Dosage: 60 UNK, UNK
     Route: 058
     Dates: start: 20120427, end: 20120503
  5. PEGINTERFERON ALFA-2B [Concomitant]
     Dosage: 70 UNK, UNK
     Route: 058
     Dates: start: 20120511, end: 20120511
  6. PEGINTERFERON ALFA-2B [Concomitant]
     Dosage: 80 UNK, UNK
     Route: 058
     Dates: start: 20120518
  7. PEGINTERFERON ALFA-2B [Concomitant]
     Dosage: 90 UNK, UNK
     Route: 058
     Dates: start: 20120525
  8. RIBAVIRIN [Concomitant]
     Dosage: 800 mg, qd
     Route: 048
     Dates: start: 20120411
  9. LOXONIN [Concomitant]
     Dosage: 1 DF, prn
     Route: 048
     Dates: start: 20120412
  10. AMOBAN [Concomitant]
     Dosage: 1 DF, qd
     Route: 048
     Dates: start: 20120412, end: 20120418
  11. ALLEGRA [Concomitant]
     Dosage: 2 DF, qd
     Route: 048
     Dates: start: 20120509
  12. RESTAMIN                           /00000401/ [Concomitant]
     Dosage: 30 g, prn
     Route: 061
     Dates: start: 20120509, end: 20120518
  13. LENDORMIN D [Concomitant]
     Dosage: UNK, prn
     Route: 048

REACTIONS (1)
  - Neutrophil count decreased [Recovered/Resolved]
